FAERS Safety Report 6019964-8 (Version None)
Quarter: 2008Q4

REPORT INFORMATION
  Report Type: 
  Country: None (occurrence: None)
  Receive Date: 20081224
  Receipt Date: 20081216
  Transmission Date: 20090506
  Serious: Yes (Hospitalization, Other)
  Sender: FDA-Public Use
  Company Number: PHHO2008US14759

PATIENT
  Sex: Male
  Weight: 28.934 kg

DRUGS (1)
  1. FOCALIN FOC+XRCAPS [Suspect]
     Dosage: UNK
     Route: 048
     Dates: start: 20081129

REACTIONS (8)
  - CONVULSION [None]
  - DECREASED APPETITE [None]
  - ELECTROCARDIOGRAM QT PROLONGED [None]
  - EYE ROLLING [None]
  - INSOMNIA [None]
  - TREMOR [None]
  - UNRESPONSIVE TO STIMULI [None]
  - VOMITING [None]
